FAERS Safety Report 7089394-9 (Version None)
Quarter: 2010Q4

REPORT INFORMATION
  Report Type: 
  Country: None (occurrence: None)
  Receive Date: 20101108
  Receipt Date: 20101020
  Transmission Date: 20110411
  Serious: Yes (Hospitalization)
  Sender: FDA-Public Use
  Company Number: KR-SANOFI-AVENTIS-2010SA066711

PATIENT
  Age: 65 Year
  Sex: Female
  Weight: 72.8 kg

DRUGS (11)
  1. CLOPIDOGREL BISULFATE [Suspect]
     Route: 048
     Dates: start: 20100310
  2. ASPIRIN [Suspect]
     Dates: start: 20100310, end: 20100326
  3. ASPIRIN [Suspect]
     Dates: start: 20100329
  4. INVESTIGATIONAL DRUG [Concomitant]
     Route: 048
     Dates: start: 20100316, end: 20100924
  5. EZETIMIBE/SIMVASTATIN [Concomitant]
     Dates: start: 20100312
  6. VALSARTAN [Concomitant]
     Dates: start: 20100329
  7. BISOPROLOL [Concomitant]
     Dates: start: 20100311, end: 20100326
  8. BISOPROLOL [Concomitant]
     Dates: start: 20100329
  9. DIMENHYDRINATE [Concomitant]
     Dates: start: 20100610, end: 20100623
  10. FUROSEMIDE [Concomitant]
     Dates: start: 20100414
  11. SPIRONOLACTONE [Concomitant]
     Dates: start: 20100414

REACTIONS (3)
  - RETINAL DETACHMENT [None]
  - RETINAL VEIN OCCLUSION [None]
  - VITREOUS HAEMORRHAGE [None]
